FAERS Safety Report 7389133-8 (Version None)
Quarter: 2011Q2

REPORT INFORMATION
  Report Type: 
  Country: None (occurrence: None)
  Receive Date: 20110401
  Receipt Date: 20110323
  Transmission Date: 20111010
  Serious: Yes (Hospitalization)
  Sender: FDA-Public Use
  Company Number: FR-JNJFOC-20110310896

PATIENT
  Sex: Female

DRUGS (9)
  1. ZYPREXA [Suspect]
     Indication: PSYCHOTIC DISORDER
     Route: 048
  2. TEMESTA [Concomitant]
     Indication: ANXIETY
     Route: 048
  3. AVLOCARDYL [Concomitant]
     Route: 048
  4. DAFLON [Concomitant]
     Route: 048
  5. ACETAMINOPHEN [Concomitant]
     Indication: PAIN
     Route: 048
  6. LIPANTHYL [Concomitant]
     Indication: DYSLIPIDAEMIA
     Route: 048
  7. IMOVANE [Concomitant]
     Indication: INSOMNIA
     Route: 048
  8. HALDOL [Suspect]
     Indication: PSYCHOTIC DISORDER
     Route: 048
  9. SEROPLEX [Concomitant]
     Indication: DEPRESSION
     Route: 048

REACTIONS (1)
  - VENOUS THROMBOSIS LIMB [None]
